FAERS Safety Report 7953209-4 (Version None)
Quarter: 2011Q4

REPORT INFORMATION
  Report Type: 
  Country: None (occurrence: None)
  Receive Date: 20111201
  Receipt Date: 20111122
  Transmission Date: 20120403
  Serious: Yes (Death)
  Sender: FDA-Public Use
  Company Number: US-RB-034890-11

PATIENT
  Sex: Male
  Weight: 85 kg

DRUGS (4)
  1. ETHANOL [Suspect]
     Indication: PRODUCT USED FOR UNKNOWN INDICATION
     Route: 048
     Dates: end: 20110828
  2. COCAINE [Suspect]
     Indication: PRODUCT USED FOR UNKNOWN INDICATION
     Dosage: UNKNOWN DOSAGE SPECIFICS
     Route: 065
     Dates: end: 20110828
  3. BUPRENORPHINE [Suspect]
     Indication: PRODUCT USED FOR UNKNOWN INDICATION
     Dosage: UNKNOWN DOSAGE DETAILS
     Route: 065
     Dates: end: 20110828
  4. ALPRAZOLAM [Suspect]
     Indication: PRODUCT USED FOR UNKNOWN INDICATION
     Dosage: UNKNOWN SPECIFICS
     Route: 065
     Dates: end: 20110828

REACTIONS (3)
  - TOXICITY TO VARIOUS AGENTS [None]
  - DYSPNOEA [None]
  - CARDIAC HYPERTROPHY [None]
